FAERS Safety Report 14781087 (Version 1)
Quarter: 2018Q2

REPORT INFORMATION
  Report Type: Spontaneous
  Country: CN (occurrence: US)
  Receive Date: 20180419
  Receipt Date: 20180419
  Transmission Date: 20180711
  Serious: Yes (Other)
  Sender: FDA-Public Use
  Company Number: CN-EXELIXIS-CABO-18013545

PATIENT
  Age: 44 Year
  Sex: Female

DRUGS (3)
  1. CABOMETYX [Suspect]
     Active Substance: CABOZANTINIB S-MALATE
     Indication: LUNG ADENOCARCINOMA
     Dosage: 80 MG, QD
     Route: 048
  2. CRIZOTINIB [Concomitant]
     Active Substance: CRIZOTINIB
     Indication: LUNG ADENOCARCINOMA
  3. OSIMERTINIB. [Suspect]
     Active Substance: OSIMERTINIB
     Indication: LUNG ADENOCARCINOMA

REACTIONS (5)
  - Off label use [Unknown]
  - Malignant neoplasm progression [Unknown]
  - Cachexia [Unknown]
  - Tachycardia [Unknown]
  - Acute respiratory distress syndrome [Unknown]
